FAERS Safety Report 6193110-2 (Version None)
Quarter: 2009Q2

REPORT INFORMATION
  Report Type: 
  Country: None (occurrence: None)
  Receive Date: 20090514
  Receipt Date: 20090508
  Transmission Date: 20091009
  Serious: Yes (Hospitalization)
  Sender: FDA-Public Use
  Company Number: US025516

PATIENT
  Age: 62 Year
  Sex: Male
  Weight: 73 kg

DRUGS (10)
  1. TREANDA [Suspect]
     Indication: NON-HODGKIN'S LYMPHOMA
     Dosage: (90 MG/M2, D1 AND D2 Q35 DAYS), INTRAVENOUS
     Route: 042
     Dates: start: 20090224, end: 20090225
  2. VELCADE [Suspect]
     Indication: NON-HODGKIN'S LYMPHOMA
     Dosage: (1.6 MG/M2, CYCLE 1, DAYS 1, 8, 15, 22 Q35 DAYS), INTRAVENOUS
     Route: 042
     Dates: start: 20090224, end: 20090318
  3. RITUXIMAB (RITUXIMAB) [Concomitant]
  4. OMEGA 3 FISH OIL (FISH OIL) [Concomitant]
  5. ADVIL (MEFENAMIC ACID) [Concomitant]
  6. ALEVE (CAPLET) [Concomitant]
  7. MIRALAX [Concomitant]
  8. BENADARYL (DIPHENHYDRAMINE HYDROCHLORIDE) [Concomitant]
  9. ACETAMINOPHEN [Concomitant]
  10. ALOXI [Concomitant]

REACTIONS (18)
  - ABDOMINAL DISTENSION [None]
  - ALPHA HAEMOLYTIC STREPTOCOCCAL INFECTION [None]
  - ANAEMIA [None]
  - ASPIRATION PLEURAL CAVITY ABNORMAL [None]
  - BACTERAEMIA [None]
  - BACTERIAL SEPSIS [None]
  - CLOSTRIDIAL INFECTION [None]
  - COLLAPSE OF LUNG [None]
  - DEHYDRATION [None]
  - ELECTROCARDIOGRAM QRS COMPLEX ABNORMAL [None]
  - HYDRONEPHROSIS [None]
  - ORTHOSTATIC HYPOTENSION [None]
  - PERICARDIAL EFFUSION [None]
  - PLEURAL EFFUSION [None]
  - RESPIRATORY RATE INCREASED [None]
  - SINUS TACHYCARDIA [None]
  - SWELLING [None]
  - URINE OUTPUT DECREASED [None]
